FAERS Safety Report 4996382-2 (Version None)
Quarter: 2006Q2

REPORT INFORMATION
  Report Type: 
  Country: None (occurrence: None)
  Receive Date: 20060509
  Receipt Date: 20060427
  Transmission Date: 20061013
  Serious: Yes (Hospitalization)
  Sender: FDA-Public Use
  Company Number: PRIUSA2000012156

PATIENT
  Sex: Male
  Weight: 71 kg

DRUGS (3)
  1. REMICADE [Suspect]
     Route: 041
     Dates: start: 20000828
  2. REMICADE [Suspect]
     Route: 041
     Dates: start: 20000828
  3. REMICADE [Suspect]
     Route: 041
     Dates: start: 20000828

REACTIONS (5)
  - FUNGAL INFECTION [None]
  - GRANULOMA [None]
  - HEPATIC ENZYME INCREASED [None]
  - LYMPH NODE TUBERCULOSIS [None]
  - PLEURAL EFFUSION [None]
